FAERS Safety Report 8664789 (Version 2)
Quarter: 2012Q4

REPORT INFORMATION
  Report Type: 
  Country: CN (occurrence: CN)
  Receive Date: 20120713
  Receipt Date: 20121214
  Transmission Date: 20130627
  Serious: Yes (Other)
  Sender: FDA-Public Use
  Company Number: CN-ABBOTT-12P-035-0955027-00

PATIENT
  Age: 31 Year
  Sex: Female

DRUGS (3)
  1. DEPAKINE [Suspect]
     Indication: EPILEPSY
     Route: 048
     Dates: start: 20120521, end: 201206
  2. DEPAKINE [Suspect]
     Route: 048
     Dates: start: 201206
  3. CARBAMAZEPINE [Concomitant]
     Indication: PRODUCT USED FOR UNKNOWN INDICATION
     Dates: start: 1991

REACTIONS (9)
  - Flushing [Unknown]
  - Epilepsy [Recovered/Resolved]
  - Staring [Unknown]
  - Loss of consciousness [Unknown]
  - Drug ineffective [Unknown]
  - Abnormal behaviour [Unknown]
  - Convulsion [Unknown]
  - Vision blurred [Recovering/Resolving]
  - Vomiting [Recovering/Resolving]
